FAERS Safety Report 9666001 (Version 1)
Quarter: 2013Q4

REPORT INFORMATION
  Report Type: Spontaneous
  Country: US (occurrence: None)
  Receive Date: 20131101
  Receipt Date: 20131101
  Transmission Date: 20140711
  Serious: Yes (Hospitalization, Other)
  Sender: FDA-Public Use
  Company Number: None

PATIENT
  Age: 74 Year
  Sex: Male
  Weight: 79.83 kg

DRUGS (5)
  1. EXJADE [Suspect]
     Indication: MYELODYSPLASTIC SYNDROME
     Route: 048
     Dates: start: 20130726, end: 20131015
  2. CARVEDILOL [Concomitant]
  3. LISINOPRIL [Concomitant]
  4. ATORVASTATIN [Concomitant]
  5. OMEPRAZOLE [Concomitant]

REACTIONS (2)
  - Nephrolithiasis [None]
  - Renal failure [None]
